FAERS Safety Report 6366965-6 (Version None)
Quarter: 2009Q3

REPORT INFORMATION
  Report Type: 
  Country: None (occurrence: None)
  Receive Date: 20090921
  Receipt Date: 20090911
  Transmission Date: 20100115
  Serious: Yes (Death, Other)
  Sender: FDA-Public Use
  Company Number: US-BAXTER-2009BH013629

PATIENT
  Age: 56 Year
  Sex: Male

DRUGS (4)
  1. HEPARIN SODIUM INJECTION [Suspect]
     Indication: THROMBOSIS PROPHYLAXIS
     Route: 042
     Dates: start: 20070401, end: 20070614
  2. GLUCOTROL [Concomitant]
     Indication: DRUG USE FOR UNKNOWN INDICATION
     Route: 065
  3. LISINOPRIL [Concomitant]
     Indication: DRUG USE FOR UNKNOWN INDICATION
     Route: 065
  4. AMLODIPINE [Concomitant]
     Indication: DRUG USE FOR UNKNOWN INDICATION
     Route: 065

REACTIONS (21)
  - ADRENAL INSUFFICIENCY [None]
  - CHILLS [None]
  - COCCIDIOIDOMYCOSIS [None]
  - DECUBITUS ULCER [None]
  - DIABETES MELLITUS [None]
  - DIARRHOEA [None]
  - DIZZINESS [None]
  - DYSPNOEA [None]
  - FUNGAEMIA [None]
  - HEADACHE [None]
  - HYPOTENSION [None]
  - LETHARGY [None]
  - MALNUTRITION [None]
  - MYOPATHY [None]
  - NAUSEA [None]
  - ORGAN FAILURE [None]
  - PANCYTOPENIA [None]
  - RENAL FAILURE CHRONIC [None]
  - SEPTIC SHOCK [None]
  - UNRESPONSIVE TO STIMULI [None]
  - VOMITING [None]
